FAERS Safety Report 5870455-4 (Version None)
Quarter: 2008Q3

REPORT INFORMATION
  Report Type: 
  Country: None (occurrence: None)
  Receive Date: 20080904
  Receipt Date: 20080702
  Transmission Date: 20090109
  Serious: Yes (Death)
  Sender: FDA-Public Use
  Company Number: US-BRISTOL-MYERS SQUIBB COMPANY-14248165

PATIENT
  Age: 54 Year
  Sex: Male

DRUGS (2)
  1. DEFINITY [Suspect]
     Indication: STRESS ECHOCARDIOGRAM
     Dosage: 1 DOSAGE FORM = 10 MCG/KILO/MINUTE AND INCREASED TO 50 MCG/KILO/MINUTE.
  2. DOBUTAMINE HCL [Suspect]
     Indication: STRESS ECHOCARDIOGRAM
     Dosage: 1 DF = 10MCG/KILO/MIN INCREASED TO 50MCG/KILO/MIN

REACTIONS (1)
  - CARDIAC ARREST [None]
